FAERS Safety Report 16864830 (Version 1)
Quarter: 2019Q3

REPORT INFORMATION
  Report Type: Spontaneous
  Country: FI (occurrence: FI)
  Receive Date: 20190929
  Receipt Date: 20190929
  Transmission Date: 20191005
  Serious: Yes (Hospitalization, Other)
  Sender: FDA-Public Use
  Company Number: PHHY2019FI225166

PATIENT
  Age: 59 Year
  Sex: Male

DRUGS (1)
  1. GILENYA [Suspect]
     Active Substance: FINGOLIMOD HYDROCHLORIDE
     Indication: MULTIPLE SCLEROSIS
     Dosage: 0.5 MG, QD
     Route: 048
     Dates: start: 2013

REACTIONS (2)
  - Squamous cell carcinoma [Recovered/Resolved with Sequelae]
  - Seborrhoeic keratosis [Recovered/Resolved]

NARRATIVE: CASE EVENT DATE: 2019
